FAERS Safety Report 24979586 (Version 1)
Quarter: 2025Q1

REPORT INFORMATION
  Report Type: Spontaneous
  Country: FR (occurrence: FR)
  Receive Date: 20250218
  Receipt Date: 20250218
  Transmission Date: 20250409
  Serious: Yes (Other)
  Sender: RANBAXY
  Company Number: FR-SUN PHARMACEUTICAL INDUSTRIES LTD-2025RR-495168

PATIENT
  Age: 65 Year
  Sex: Male
  Weight: 86 kg

DRUGS (4)
  1. CIPROFLOXACIN [Suspect]
     Active Substance: CIPROFLOXACIN
     Indication: Urinary tract infection
     Dosage: 750 MG MORNING AND EVENING
     Route: 048
     Dates: start: 20230929, end: 20231001
  2. ELREXFIO [Concomitant]
     Active Substance: ELRANATAMAB-BCMM
     Indication: Plasma cell myeloma
     Route: 058
     Dates: start: 20230804
  3. ELREXFIO [Concomitant]
     Active Substance: ELRANATAMAB-BCMM
     Route: 065
     Dates: start: 20230807
  4. ELREXFIO [Concomitant]
     Active Substance: ELRANATAMAB-BCMM
     Dosage: 76 MILLIGRAM, 1/WEEK
     Route: 065
     Dates: start: 20230811

REACTIONS (3)
  - Tendon disorder [Recovered/Resolved]
  - Oedema peripheral [Recovered/Resolved]
  - Rash erythematous [Recovered/Resolved]

NARRATIVE: CASE EVENT DATE: 20230930
